FAERS Safety Report 8598318-4 (Version None)
Quarter: 2012Q3

REPORT INFORMATION
  Report Type: 
  Country: None (occurrence: None)
  Receive Date: 20120816
  Receipt Date: 20120807
  Transmission Date: 20120928
  Serious: Yes (Other)
  Sender: FDA-Public Use
  Company Number: CA-JNJFOC-20120801795

PATIENT
  Sex: Male
  Weight: 109 kg

DRUGS (1)
  1. REMICADE [Suspect]
     Indication: CROHN'S DISEASE
     Route: 042
     Dates: start: 20081001

REACTIONS (3)
  - TRANSURETHRAL PROSTATECTOMY [None]
  - POLLAKIURIA [None]
  - BLADDER OPERATION [None]
